FAERS Safety Report 7102630-5 (Version None)
Quarter: 2010Q4

REPORT INFORMATION
  Report Type: 
  Country: None (occurrence: None)
  Receive Date: 20101115
  Receipt Date: 20101110
  Transmission Date: 20110411
  Serious: Yes (Hospitalization)
  Sender: FDA-Public Use
  Company Number: B0683756A

PATIENT
  Sex: Male

DRUGS (2)
  1. LAMICTAL [Suspect]
     Indication: EPILEPSY
     Route: 048
     Dates: start: 20100830, end: 20100929
  2. KEPPRA [Concomitant]
     Route: 065
     Dates: end: 20100926

REACTIONS (3)
  - CHEILITIS [None]
  - RASH MACULO-PAPULAR [None]
  - TOXIC SKIN ERUPTION [None]
